FAERS Safety Report 9994594 (Version 2)
Quarter: 2014Q2

REPORT INFORMATION
  Report Type: Spontaneous
  Country: GB (occurrence: GB)
  Receive Date: 20140311
  Receipt Date: 20140410
  Transmission Date: 20141212
  Serious: Yes (Life-Threatening, Hospitalization, Other)
  Sender: FDA-Public Use
  Company Number: GB-BRISTOL-MYERS SQUIBB COMPANY-20386314

PATIENT
  Age: 50 Year
  Sex: Female
  Weight: 96 kg

DRUGS (4)
  1. FORXIGA [Suspect]
     Indication: HYPOGLYCAEMIA
     Dosage: TABS
     Route: 048
     Dates: start: 20130516, end: 20131030
  2. METFORMIN [Concomitant]
  3. INSULIN [Concomitant]
  4. LANTUS [Concomitant]

REACTIONS (8)
  - Urogenital disorder [Unknown]
  - Renal failure [Unknown]
  - Sepsis [Recovering/Resolving]
  - Vomiting [Unknown]
  - Urinary tract infection [Unknown]
  - Syncope [Unknown]
  - Retinal ischaemia [Unknown]
  - Diarrhoea [Unknown]
